FAERS Safety Report 5157671-4 (Version None)
Quarter: 2006Q4

REPORT INFORMATION
  Report Type: 
  Country: None (occurrence: None)
  Receive Date: 20061115
  Receipt Date: 20061102
  Transmission Date: 20070319
  Serious: Yes (Other)
  Sender: FDA-Public Use
  Company Number: ST-2006-009354

PATIENT
  Age: 64 Year
  Sex: Male
  Weight: 66.3 kg

DRUGS (4)
  1. OLMETEC [Suspect]
     Indication: ESSENTIAL HYPERTENSION
     Dosage: 20 MG QD PO
     Route: 048
     Dates: start: 20051013
  2. AMLODIPINE BESYLATE [Concomitant]
  3. DIOVAN [Concomitant]
  4. GLIMICRON [Concomitant]

REACTIONS (1)
  - CEREBRAL INFARCTION [None]
